FAERS Safety Report 25405536 (Version 1)
Quarter: 2025Q2

REPORT INFORMATION
  Report Type: Spontaneous
  Country: FR (occurrence: FR)
  Receive Date: 20250606
  Receipt Date: 20250606
  Transmission Date: 20250716
  Serious: Yes (Hospitalization)
  Sender: TEVA
  Company Number: None

PATIENT
  Age: 58 Year
  Sex: Male
  Weight: 80.7 kg

DRUGS (4)
  1. KETOPROFEN [Suspect]
     Active Substance: KETOPROFEN
     Indication: Back pain
     Route: 048
     Dates: start: 20241108, end: 20241118
  2. BACTRIM [Concomitant]
     Active Substance: SULFAMETHOXAZOLE\TRIMETHOPRIM
     Indication: Product used for unknown indication
     Route: 065
  3. TOCILIZUMAB [Concomitant]
     Active Substance: TOCILIZUMAB
     Indication: Product used for unknown indication
     Route: 065
  4. FLUTICASONE FUROATE\VILANTEROL TRIFENATATE [Concomitant]
     Active Substance: FLUTICASONE FUROATE\VILANTEROL TRIFENATATE
     Indication: Product used for unknown indication
     Route: 065

REACTIONS (6)
  - Dermatitis bullous [Recovering/Resolving]
  - Erythema [Recovering/Resolving]
  - Alanine aminotransferase increased [Recovering/Resolving]
  - Purpura [Recovering/Resolving]
  - Oedema peripheral [Recovering/Resolving]
  - Eosinophilia [Recovering/Resolving]

NARRATIVE: CASE EVENT DATE: 20241101
